FAERS Safety Report 21695595 (Version 1)
Quarter: 2022Q4

REPORT INFORMATION
  Report Type: Spontaneous
  Country: US (occurrence: US)
  Receive Date: 20221207
  Receipt Date: 20221207
  Transmission Date: 20230113
  Serious: No
  Sender: FDA-Public Use
  Company Number: US-MYLANLABS-2022M1135375

PATIENT
  Sex: Male

DRUGS (1)
  1. FOSAPREPITANT [Suspect]
     Active Substance: FOSAPREPITANT
     Indication: Product used for unknown indication
     Dosage: UNK
     Route: 065

REACTIONS (5)
  - Feeling hot [Unknown]
  - Eye swelling [Unknown]
  - Lip swelling [Unknown]
  - Arthralgia [Unknown]
  - Erythema [Unknown]

NARRATIVE: CASE EVENT DATE: 20220406
